FAERS Safety Report 23889877 (Version 1)
Quarter: 2024Q2

REPORT INFORMATION
  Report Type: Spontaneous
  Country: JP (occurrence: None)
  Receive Date: 20240523
  Receipt Date: 20240523
  Transmission Date: 20240716
  Serious: Yes (Other)
  Sender: FDA-Public Use
  Company Number: 2024A116112

PATIENT
  Sex: Female

DRUGS (1)
  1. LYNPARZA [Suspect]
     Active Substance: OLAPARIB
     Indication: Ovarian cancer
     Route: 048
     Dates: start: 202302

REACTIONS (1)
  - Lymphoma [Unknown]
